FAERS Safety Report 13032342 (Version 1)
Quarter: 2016Q4

REPORT INFORMATION
  Report Type: Report from Study
  Country: PT (occurrence: PT)
  Receive Date: 20161215
  Receipt Date: 20161215
  Transmission Date: 20170207
  Serious: Yes (Other)
  Sender: FDA-Public Use
  Company Number: PT-PFIZER INC-2014158654

PATIENT
  Age: 36 Year
  Sex: Female

DRUGS (5)
  1. CEFAZOLIN [Suspect]
     Active Substance: CEFAZOLIN
     Dosage: UNK
     Route: 051
  2. ROPIVACAIN [Concomitant]
     Active Substance: ROPIVACAINE
     Indication: EPIDURAL ANAESTHESIA
     Dosage: UNK
     Route: 008
  3. OXYTOCIN. [Concomitant]
     Active Substance: OXYTOCIN
     Dosage: UNK
  4. SUFENTANIL [Concomitant]
     Active Substance: SUFENTANIL
     Indication: EPIDURAL ANAESTHESIA
     Dosage: UNK
     Route: 008
  5. EPHEDRINE. [Concomitant]
     Active Substance: EPHEDRINE
     Dosage: UNK

REACTIONS (4)
  - Erythema [Unknown]
  - Drug hypersensitivity [Unknown]
  - Angioedema [Unknown]
  - Hypotension [Unknown]
